FAERS Safety Report 11756927 (Version 1)
Quarter: 2015Q4

REPORT INFORMATION
  Report Type: Report from Study
  Country: US (occurrence: US)
  Receive Date: 20151120
  Receipt Date: 20151120
  Transmission Date: 20160304
  Serious: Yes (Death)
  Sender: FDA-Public Use
  Company Number: US-ASTRAZENECA-2015SF11328

PATIENT
  Sex: Male

DRUGS (1)
  1. DALIRESP [Suspect]
     Active Substance: ROFLUMILAST
     Dosage: 500 MCG
     Route: 048

REACTIONS (1)
  - Death [Fatal]
